FAERS Safety Report 20010311 (Version 1)
Quarter: 2021Q4

REPORT INFORMATION
  Report Type: Spontaneous
  Country: US (occurrence: US)
  Receive Date: 20211028
  Receipt Date: 20211028
  Transmission Date: 20220303
  Serious: No
  Sender: FDA-Public Use
  Company Number: None

PATIENT
  Sex: Female

DRUGS (2)
  1. TREPROSTINIL [Suspect]
     Active Substance: TREPROSTINIL
     Indication: Pulmonary arterial hypertension
     Dates: start: 20211023
  2. TREPROSTINIL [Suspect]
     Active Substance: TREPROSTINIL
     Indication: Pulmonary arterial hypertension
     Route: 058
     Dates: start: 20211023

REACTIONS (9)
  - Drug intolerance [None]
  - Drug titration [None]
  - Nausea [None]
  - Decreased appetite [None]
  - Dizziness [None]
  - Pain in extremity [None]
  - Presyncope [None]
  - Hypotension [None]
  - Heart rate decreased [None]
